FAERS Safety Report 5402829-X (Version None)
Quarter: 2007Q3

REPORT INFORMATION
  Report Type: 
  Country: None (occurrence: None)
  Receive Date: 20070801
  Receipt Date: 20070725
  Transmission Date: 20080115
  Serious: Yes (Death, Hospitalization)
  Sender: FDA-Public Use
  Company Number: US-BRISTOL-MYERS SQUIBB COMPANY-13700703

PATIENT
  Age: 28 Year
  Sex: Female

DRUGS (1)
  1. LOMUSTINE [Suspect]
     Indication: ANAPLASTIC ASTROCYTOMA

REACTIONS (11)
  - ABDOMINAL PAIN [None]
  - ACCIDENTAL OVERDOSE [None]
  - BONE MARROW FAILURE [None]
  - HEPATOTOXICITY [None]
  - ILEITIS [None]
  - MENTAL STATUS CHANGES [None]
  - MULTI-ORGAN FAILURE [None]
  - NEUROTOXICITY [None]
  - PANCYTOPENIA [None]
  - PULMONARY TOXICITY [None]
  - PYREXIA [None]
